FAERS Safety Report 9773739 (Version 1)
Quarter: 2013Q4

REPORT INFORMATION
  Report Type: Spontaneous
  Country: US (occurrence: US)
  Receive Date: 20131219
  Receipt Date: 20131219
  Transmission Date: 20140711
  Serious: Yes (Hospitalization, Other)
  Sender: FDA-Public Use
  Company Number: US-009507513-1312USA005975

PATIENT
  Sex: Male

DRUGS (2)
  1. REBETOL [Suspect]
     Indication: CHRONIC HEPATITIS C
     Dosage: UNK
     Route: 048
     Dates: start: 20040102, end: 20090102
  2. PEGASYS [Suspect]
     Indication: CHRONIC HEPATITIS C
     Dosage: UNK
     Dates: start: 20040102, end: 20090102

REACTIONS (5)
  - Hepatic cancer [Recovered/Resolved]
  - Surgery [Unknown]
  - Neoplasm [Unknown]
  - Drug ineffective [Unknown]
  - Feeling abnormal [Unknown]
